FAERS Safety Report 5102757-3 (Version None)
Quarter: 2006Q3

REPORT INFORMATION
  Report Type: 
  Country: None (occurrence: None)
  Receive Date: 20060907
  Receipt Date: 20060801
  Transmission Date: 20061208
  Serious: Yes (Other)
  Sender: FDA-Public Use
  Company Number: AU200608006422

PATIENT
  Age: 54 Year
  Sex: Female

DRUGS (1)
  1. ZYPREXA [Suspect]
     Indication: BIPOLAR DISORDER
     Dosage: 5 MG, 2/D, ORAL
     Route: 048
     Dates: start: 20060630

REACTIONS (22)
  - ABDOMINAL PAIN [None]
  - ABDOMINAL PAIN LOWER [None]
  - ABDOMINAL PAIN UPPER [None]
  - BALANCE DISORDER [None]
  - BLOOD PRESSURE INCREASED [None]
  - BODY TEMPERATURE DECREASED [None]
  - CONTUSION [None]
  - DIARRHOEA [None]
  - DISORIENTATION [None]
  - ERYTHEMA [None]
  - EXCESSIVE EYE BLINKING [None]
  - FALL [None]
  - FEELING COLD [None]
  - GAIT DISTURBANCE [None]
  - HEAD TITUBATION [None]
  - MALAISE [None]
  - MALIGNANT MELANOMA [None]
  - MOVEMENT DISORDER [None]
  - MYALGIA [None]
  - PAIN IN JAW [None]
  - PARAESTHESIA [None]
  - RASH [None]
